FAERS Safety Report 5752669-7 (Version None)
Quarter: 2008Q2

REPORT INFORMATION
  Report Type: 
  Country: None (occurrence: None)
  Receive Date: 20080527
  Receipt Date: 20080527
  Transmission Date: 20081010
  Serious: Yes (Hospitalization)
  Sender: FDA-Public Use
  Company Number: None

PATIENT
  Age: 22 Year
  Sex: Female
  Weight: 134 kg

DRUGS (1)
  1. LEVAQUIN [Suspect]
     Indication: INFECTION
     Dosage: 500 MG ONCE IV BOLUS
     Route: 040

REACTIONS (4)
  - HYPERSENSITIVITY [None]
  - INCORRECT DRUG ADMINISTRATION RATE [None]
  - INJECTION SITE ERYTHEMA [None]
  - VEIN DISORDER [None]
